FAERS Safety Report 4263663-X (Version None)
Quarter: 2004Q1

REPORT INFORMATION
  Report Type: 
  Country: None (occurrence: None)
  Receive Date: 20040102
  Receipt Date: 20031222
  Transmission Date: 20041129
  Serious: Yes (Hospitalization)
  Sender: FDA-Public Use
  Company Number: JP-JNJFOC-20031005421

PATIENT
  Sex: Female

DRUGS (2)
  1. MICONAZOLE [Suspect]
     Indication: GASTROINTESTINAL CANDIDIASIS
     Dosage: 10 G, IN 1 DAY, ORAL
     Route: 048
     Dates: start: 20031010, end: 20031017
  2. GLIBENCLAMIDE (GLIBENCLAMIDE) UNKNOWN [Suspect]
     Indication: DIABETES MELLITUS
     Dosage: 1.25 MG, IN 1 DAY
     Dates: start: 20031016, end: 20031017

REACTIONS (1)
  - HYPOGLYCAEMIA [None]
